FAERS Safety Report 5094769-3 (Version None)
Quarter: 2006Q3

REPORT INFORMATION
  Report Type: 
  Country: None (occurrence: None)
  Receive Date: 20060731
  Receipt Date: 20060419
  Transmission Date: 20061208
  Serious: No
  Sender: FDA-Public Use
  Company Number: 2006PV012372

PATIENT
  Age: 64 Year
  Weight: 136.5327 kg

DRUGS (13)
  1. BYETTA [Suspect]
     Indication: DIABETES MELLITUS NON-INSULIN-DEPENDENT
     Dosage: 5 MCG;QPM; SC
     Route: 058
     Dates: start: 20060331
  2. METFORMIN HCL [Concomitant]
  3. HUMULIN N [Concomitant]
  4. AVANDIA [Concomitant]
  5. GLYBURIDE [Concomitant]
  6. HUMALOG [Concomitant]
  7. HYPERTENSION MEDICATION [Concomitant]
  8. CHOLESTEROL MEDICATION [Concomitant]
  9. THYROID TAB [Concomitant]
  10. B12 DEFICIENCY MEDICATION [Concomitant]
  11. VITAMINS [Concomitant]
  12. MINERAL TAB [Concomitant]
  13. HERBAL SUPPLEMENTS [Concomitant]

REACTIONS (6)
  - ABDOMINAL DISTENSION [None]
  - BLOOD GLUCOSE INCREASED [None]
  - HEADACHE [None]
  - MUSCLE SPASMS [None]
  - NAUSEA [None]
  - WEIGHT DECREASED [None]
